FAERS Safety Report 5503025-8 (Version None)
Quarter: 2007Q4

REPORT INFORMATION
  Report Type: 
  Country: None (occurrence: None)
  Receive Date: 20071031
  Receipt Date: 20071022
  Transmission Date: 20080405
  Serious: Yes (Other)
  Sender: FDA-Public Use
  Company Number: FR-ROCHE-516299

PATIENT
  Age: 19 Year
  Sex: Male

DRUGS (2)
  1. ROACCUTANE [Suspect]
     Indication: ACNE
     Route: 065
     Dates: start: 20030405
  2. ROACCUTANE [Suspect]
     Dosage: DOSE REDUCED.
     Route: 065
     Dates: end: 20041108

REACTIONS (1)
  - LIGAMENT RUPTURE [None]
